FAERS Safety Report 13088178 (Version 3)
Quarter: 2017Q1

REPORT INFORMATION
  Report Type: Spontaneous
  Country: US (occurrence: US)
  Receive Date: 20170105
  Receipt Date: 20170220
  Transmission Date: 20170428
  Serious: Yes (Other)
  Sender: FDA-Public Use
  Company Number: US-GLAXOSMITHKLINE-US2017GSK000405

PATIENT
  Sex: Female
  Weight: 49.6 kg

DRUGS (3)
  1. BENLYSTA [Suspect]
     Active Substance: BELIMUMAB
     Indication: SYSTEMIC LUPUS ERYTHEMATOSUS
     Dosage: UNK
     Dates: start: 20120103, end: 2016
  2. AZATHIOPRINE. [Concomitant]
     Active Substance: AZATHIOPRINE
     Dosage: 75 MG UNK
  3. PREDNISONE. [Concomitant]
     Active Substance: PREDNISONE
     Dosage: 10 MG UNK, UNK

REACTIONS (8)
  - Migraine [Recovered/Resolved]
  - BK virus infection [Recovered/Resolved]
  - Kidney infection [Unknown]
  - Viral infection [Unknown]
  - Ill-defined disorder [Unknown]
  - Systemic lupus erythematosus [Unknown]
  - Immune system disorder [Unknown]
  - Urinary tract infection viral [Recovered/Resolved]
